FAERS Safety Report 18450601 (Version 5)
Quarter: 2022Q1

REPORT INFORMATION
  Report Type: Other
  Country: CA (occurrence: None)
  Receive Date: 20201030
  Receipt Date: 20220319
  Transmission Date: 20220423
  Serious: Yes (Hospitalization)
  Sender: FDA-Public Use
  Company Number: CA-ROCHE-2579101

PATIENT
  Sex: Male

DRUGS (7)
  1. OCREVUS [Suspect]
     Active Substance: OCRELIZUMAB
     Indication: Primary progressive multiple sclerosis
     Dosage: 300 MG AT DAY 0 AND 14, THEN 600 MG EVERY 6 MONTH
     Route: 042
     Dates: start: 20190128
  2. OCREVUS [Suspect]
     Active Substance: OCRELIZUMAB
     Indication: Primary progressive multiple sclerosis
  3. DANTRIUM [Concomitant]
     Active Substance: DANTROLENE SODIUM
  4. GABAPENTIN [Concomitant]
     Active Substance: GABAPENTIN
  5. TYLENOL [Concomitant]
     Active Substance: ACETAMINOPHEN
  6. IBUPROFEN [Concomitant]
     Active Substance: IBUPROFEN
  7. BACLOFEN [Concomitant]
     Active Substance: BACLOFEN

REACTIONS (9)
  - Pneumonia [Not Recovered/Not Resolved]
  - Body temperature increased [Recovered/Resolved]
  - Vomiting [Recovered/Resolved]
  - Lethargy [Recovered/Resolved]
  - Nasopharyngitis [Not Recovered/Not Resolved]
  - Cough [Unknown]
  - Influenza [Unknown]
  - Dizziness [Recovered/Resolved]
  - COVID-19 [Recovering/Resolving]
